FAERS Safety Report 17490793 (Version 3)
Quarter: 2021Q2

REPORT INFORMATION
  Report Type: Spontaneous
  Country: US (occurrence: US)
  Receive Date: 20200304
  Receipt Date: 20210521
  Transmission Date: 20210716
  Serious: No
  Sender: FDA-Public Use
  Company Number: US-BIOGEN-2019BI00775824

PATIENT
  Age: 51 Year
  Sex: Female

DRUGS (4)
  1. TECFIDERA [Suspect]
     Active Substance: DIMETHYL FUMARATE
     Route: 065
     Dates: start: 20190717, end: 20191022
  2. TECFIDERA [Suspect]
     Active Substance: DIMETHYL FUMARATE
     Route: 065
     Dates: end: 20190809
  3. TECFIDERA [Suspect]
     Active Substance: DIMETHYL FUMARATE
     Indication: MULTIPLE SCLEROSIS
     Route: 048
     Dates: start: 20190730, end: 20190809
  4. TECFIDERA [Suspect]
     Active Substance: DIMETHYL FUMARATE
     Route: 048
     Dates: start: 20190917

REACTIONS (9)
  - Abdominal pain [Recovered/Resolved]
  - Flushing [Unknown]
  - Abdominal pain upper [Not Recovered/Not Resolved]
  - Gastrointestinal disorder [Recovered/Resolved]
  - Pain [Recovered/Resolved]
  - Drug ineffective [Not Recovered/Not Resolved]
  - Swelling [Not Recovered/Not Resolved]
  - Pruritus [Not Recovered/Not Resolved]
  - Urticaria [Not Recovered/Not Resolved]

NARRATIVE: CASE EVENT DATE: 201907
